FAERS Safety Report 6176389-2 (Version None)
Quarter: 2009Q2

REPORT INFORMATION
  Report Type: 
  Country: None (occurrence: None)
  Receive Date: 20090501
  Receipt Date: 20080903
  Transmission Date: 20091009
  Serious: Yes (Hospitalization)
  Sender: FDA-Public Use
  Company Number: US-ALEXION-A200800190

PATIENT

DRUGS (6)
  1. SOLIRIS [Suspect]
     Indication: PAROXYSMAL NOCTURNAL HAEMOGLOBINURIA
     Dosage: 600 MG, SINGLE
     Route: 042
     Dates: start: 20080717, end: 20080717
  2. SOLIRIS [Suspect]
     Dosage: 600 MG, SINGLE
     Route: 042
     Dates: start: 20080724, end: 20080724
  3. SOLIRIS [Suspect]
     Dosage: 600 MG, SINGLE
     Route: 042
     Dates: start: 20080731, end: 20080731
  4. SOLIRIS [Suspect]
     Dosage: 600 MG, SINGLE
     Route: 042
     Dates: start: 20080807, end: 20080807
  5. ARANESP [Concomitant]
     Indication: BLOOD COUNT ABNORMAL
     Dosage: UNK, UNK
     Route: 051
  6. DESFERAL /00062903/ [Concomitant]
     Indication: HAEMOCHROMATOSIS
     Dosage: UNK, UNK
     Route: 051

REACTIONS (1)
  - HAEMOGLOBIN DECREASED [None]
